FAERS Safety Report 11217462 (Version 1)
Quarter: 2015Q2

REPORT INFORMATION
  Report Type: Spontaneous
  Country: NL (occurrence: NL)
  Receive Date: 20150625
  Receipt Date: 20150625
  Transmission Date: 20150821
  Serious: Yes (Life-Threatening, Other)
  Sender: FDA-Public Use
  Company Number: NL-ASTRAZENECA-2015SE60455

PATIENT
  Age: 15945 Day
  Sex: Female
  Weight: 57 kg

DRUGS (5)
  1. ROTER PARACETAMOL [Suspect]
     Active Substance: ACETAMINOPHEN
     Indication: DISCOMFORT
     Route: 048
     Dates: start: 2015
  2. ROTER PARACETAMOL [Suspect]
     Active Substance: ACETAMINOPHEN
     Indication: PAIN
     Route: 048
     Dates: start: 2015
  3. ANASTROZOL [Suspect]
     Active Substance: ANASTROZOLE
     Indication: METASTASES TO LIVER
     Route: 048
     Dates: start: 20150327, end: 20150614
  4. DICLOFENAC-NATRIUM [Suspect]
     Active Substance: DICLOFENAC SODIUM
     Indication: BONE PAIN
     Route: 048
     Dates: start: 20150604, end: 20150608
  5. DICLOFENAC-NATRIUM [Suspect]
     Active Substance: DICLOFENAC SODIUM
     Indication: MYALGIA
     Route: 048
     Dates: start: 20150604, end: 20150608

REACTIONS (4)
  - Tumour marker increased [Unknown]
  - Liver function test abnormal [Unknown]
  - Hepatomegaly [Unknown]
  - Hepatitis [Unknown]

NARRATIVE: CASE EVENT DATE: 20150607
